FAERS Safety Report 9351790 (Version 1)
Quarter: 2013Q2

REPORT INFORMATION
  Report Type: Spontaneous
  Country: FR (occurrence: FR)
  Receive Date: 20130617
  Receipt Date: 20130617
  Transmission Date: 20140414
  Serious: Yes (Other)
  Sender: FDA-Public Use
  Company Number: FR-JNJFOC-20130416424

PATIENT
  Age: 37 Year
  Sex: Female
  Weight: 60 kg

DRUGS (2)
  1. SIMPONI [Suspect]
     Indication: ANKYLOSING SPONDYLITIS
     Dosage: ONE INJECTION PER MONTH
     Route: 058
     Dates: start: 201303
  2. SIMPONI [Suspect]
     Indication: ANKYLOSING SPONDYLITIS
     Dosage: SECOND INJECTION
     Route: 058
     Dates: end: 201304

REACTIONS (1)
  - Abdominal pain upper [Recovered/Resolved]
